FAERS Safety Report 8926646 (Version 1)
Quarter: 2012Q4

REPORT INFORMATION
  Report Type: 
  Country: DE (occurrence: DE)
  Receive Date: 20121127
  Receipt Date: 20121127
  Transmission Date: 20130627
  Serious: Yes (Life-Threatening, Hospitalization, Congenital Anomaly, Other)
  Sender: FDA-Public Use
  Company Number: GXKR2012DE003590

PATIENT
  Sex: Female

DRUGS (1)
  1. FLUOXETINE [Suspect]
     Dosage: Maternal dose: 20 mg/day
     Route: 064

REACTIONS (10)
  - Patent ductus arteriosus [Recovered/Resolved]
  - Atrial septal defect [Unknown]
  - Persistent foetal circulation [Recovered/Resolved]
  - Cyanosis [Unknown]
  - Neonatal asphyxia [Recovered/Resolved with Sequelae]
  - Atelectasis neonatal [Recovered/Resolved]
  - Hypotonia neonatal [Not Recovered/Not Resolved]
  - Restlessness [Not Recovered/Not Resolved]
  - Neonatal disorder [Not Recovered/Not Resolved]
  - Foetal exposure during pregnancy [Unknown]
